FAERS Safety Report 4676729-7 (Version None)
Quarter: 2005Q2

REPORT INFORMATION
  Report Type: 
  Country: None (occurrence: None)
  Receive Date: 20050527
  Receipt Date: 20050523
  Transmission Date: 20051028
  Serious: Yes (Disabling, Other)
  Sender: FDA-Public Use
  Company Number: US-ABBOTT-05P-163-0301036-00

PATIENT
  Age: 51 Year
  Sex: Female

DRUGS (4)
  1. HUMIRA [Suspect]
     Indication: RHEUMATOID ARTHRITIS
     Route: 058
     Dates: start: 20031101, end: 20050223
  2. HYDROCODONE BITARTRATE [Concomitant]
     Indication: PAIN
     Route: 048
  3. OXYBUTYNIN HYDROCHLORIDE [Concomitant]
     Indication: URINARY INCONTINENCE
     Route: 048
  4. DIPHENHYDRAMINE HCL [Concomitant]
     Indication: DRUG USE FOR UNKNOWN INDICATION
     Route: 048

REACTIONS (4)
  - BLINDNESS [None]
  - BLINDNESS UNILATERAL [None]
  - CSF TEST ABNORMAL [None]
  - DEMYELINATION [None]
